FAERS Safety Report 24651438 (Version 1)
Quarter: 2024Q4

REPORT INFORMATION
  Report Type: Spontaneous
  Country: US (occurrence: US)
  Receive Date: 20241122
  Receipt Date: 20241122
  Transmission Date: 20250115
  Serious: No
  Sender: ALVOGEN
  Company Number: US-ALVOGEN-2023092514

PATIENT
  Age: 72 Year
  Sex: Female

DRUGS (4)
  1. TERIPARATIDE [Suspect]
     Active Substance: TERIPARATIDE
     Indication: Product used for unknown indication
     Dosage: FIRST PEN?STRENGTH: 20 MCG; 620 MCG/2.48 ML
     Dates: start: 202307
  2. TERIPARATIDE [Suspect]
     Active Substance: TERIPARATIDE
     Indication: Product used for unknown indication
     Dosage: DAILY (FIFTH MONTH OF TAKING)?EXPIRATION DATE: UU-OCT-2024?STRENGTH: 20 MCG; 620 MCG/2.48 ML
     Dates: start: 20231102
  3. TERIPARATIDE [Suspect]
     Active Substance: TERIPARATIDE
     Indication: Product used for unknown indication
     Dosage: EXPIRATION DATE: UU-OCT-2024?SN 043584616093
     Dates: start: 20240123
  4. TERIPARATIDE [Suspect]
     Active Substance: TERIPARATIDE
     Indication: Product used for unknown indication
     Dosage: EXPIRATION DATE: UU-OCT-2024?SN#033278298711 ?REPLACED PEN
     Dates: start: 20240123

REACTIONS (5)
  - Device physical property issue [Unknown]
  - Product dose omission issue [Unknown]
  - Physical product label issue [Unknown]
  - Device malfunction [Unknown]
  - Product use issue [Unknown]

NARRATIVE: CASE EVENT DATE: 20231101
